FAERS Safety Report 7336070-0 (Version None)
Quarter: 2011Q1

REPORT INFORMATION
  Report Type: 
  Country: None (occurrence: None)
  Receive Date: 20110301
  Receipt Date: 20110301
  Transmission Date: 20110831
  Serious: Yes (Hospitalization)
  Sender: FDA-Public Use
  Company Number: None

PATIENT
  Sex: Female
  Weight: 95.3 kg

DRUGS (2)
  1. TEMSIROLIUMUS [Suspect]
     Indication: METASTATIC NEOPLASM
     Dosage: TEMSIROLIUMUS WEEKLY IV
     Route: 042
     Dates: start: 20110113
  2. VINORELBINE [Suspect]
     Indication: METASTATIC NEOPLASM
     Dosage: VINORELBINE BIWEEKLY IV
     Route: 042
     Dates: start: 20110113

REACTIONS (5)
  - HYPERGLYCAEMIA [None]
  - VOMITING [None]
  - ABDOMINAL PAIN [None]
  - ABDOMINAL HERNIA [None]
  - LIVER DISORDER [None]
